FAERS Safety Report 5096172-9 (Version None)
Quarter: 2006Q3

REPORT INFORMATION
  Report Type: 
  Country: None (occurrence: None)
  Receive Date: 20060831
  Receipt Date: 20060822
  Transmission Date: 20061208
  Serious: Yes (Other)
  Sender: FDA-Public Use
  Company Number: 2006US-03370

PATIENT
  Age: 21 Year
  Sex: Female

DRUGS (1)
  1. ISOTRETINOIN [Suspect]
     Dosage: 40 MG, BID
     Dates: start: 20060616, end: 20060719

REACTIONS (4)
  - CONDITION AGGRAVATED [None]
  - CORNEAL DEGENERATION [None]
  - DRY EYE [None]
  - KERATOCONUS [None]
